FAERS Safety Report 16301013 (Version 2)
Quarter: 2019Q2

REPORT INFORMATION
  Report Type: Spontaneous
  Country: US (occurrence: US)
  Receive Date: 20190510
  Receipt Date: 20190605
  Transmission Date: 20190711
  Serious: No
  Sender: FDA-Public Use
  Company Number: US-ASTRAZENECA-2019SE59601

PATIENT
  Age: 29647 Day
  Sex: Female
  Weight: 47.6 kg

DRUGS (3)
  1. PULMICORT FLEXHALER [Suspect]
     Active Substance: BUDESONIDE
     Indication: DYSPNOEA
     Route: 055
     Dates: start: 20180713
  2. DITROPAN [Concomitant]
     Active Substance: OXYBUTYNIN CHLORIDE
     Indication: BLADDER DISORDER
     Route: 048
  3. VITAMINS [Concomitant]
     Active Substance: VITAMINS
     Route: 048

REACTIONS (9)
  - Device failure [Unknown]
  - Body height decreased [Not Recovered/Not Resolved]
  - Abdominal discomfort [Unknown]
  - Weight decreased [Not Recovered/Not Resolved]
  - Weight gain poor [Not Recovered/Not Resolved]
  - Product dose omission [Unknown]
  - Off label use [Unknown]
  - Intentional product misuse [Unknown]
  - Product use in unapproved indication [Unknown]

NARRATIVE: CASE EVENT DATE: 20190413
